FAERS Safety Report 4551441-3 (Version None)
Quarter: 2005Q1

REPORT INFORMATION
  Report Type: 
  Country: None (occurrence: None)
  Receive Date: 20050107
  Receipt Date: 20041228
  Transmission Date: 20050727
  Serious: Yes (Disabling, Other)
  Sender: FDA-Public Use
  Company Number: 2004097127

PATIENT
  Age: 20 Year
  Sex: Male

DRUGS (1)
  1. AZITHROMYCIN [Suspect]
     Indication: PHARYNGITIS
     Dosage: 500 MG (500 MG, 1 IN 1 D), ORAL
     Route: 048

REACTIONS (3)
  - HYPOGEUSIA [None]
  - IMPAIRED WORK ABILITY [None]
  - PAROSMIA [None]
